FAERS Safety Report 8960866 (Version 2)
Quarter: 2013Q1

REPORT INFORMATION
  Report Type: Spontaneous
  Country: US (occurrence: None)
  Receive Date: 20121128
  Receipt Date: 20130204
  Transmission Date: 20140127
  Serious: Yes (Death, Other)
  Sender: FDA-Public Use
  Company Number: 2012US-004413

PATIENT
  Age: 77 Year
  Sex: Male

DRUGS (11)
  1. OMONTYS [Suspect]
     Indication: NEPHROGENIC ANAEMIA
     Route: 042
     Dates: start: 20120908, end: 20120908
  2. AVODART [Concomitant]
  3. FLOMAX [Concomitant]
  4. GLYBURIDE (GLIBENCLAMIDE) [Concomitant]
  5. JANUVIA [Concomitant]
  6. METOPROLOL [Concomitant]
  7. ENALAPRIL [Concomitant]
  8. LIPITOR [Concomitant]
  9. ASPIRIN (ACETYLSALICYLIC ACID) [Concomitant]
  10. LASIX [Concomitant]
  11. POTASSIUM [Concomitant]

REACTIONS (6)
  - Lung neoplasm malignant [None]
  - Muscular weakness [None]
  - Decreased appetite [None]
  - Nausea [None]
  - Vomiting [None]
  - Weight decreased [None]
